FAERS Safety Report 7671531-6 (Version None)
Quarter: 2011Q3

REPORT INFORMATION
  Report Type: 
  Country: None (occurrence: None)
  Receive Date: 20110809
  Receipt Date: 20110809
  Transmission Date: 20111222
  Serious: No
  Sender: FDA-Public Use
  Company Number: None

PATIENT
  Age: 55 Year
  Sex: Female
  Weight: 65.77 kg

DRUGS (2)
  1. AZITHROMYCIN [Suspect]
     Indication: RESPIRATORY TRACT CONGESTION
     Dosage: 2 TABS FIRST DAY, 1 THEREAFTER
     Route: 048
     Dates: start: 20110705, end: 20110709
  2. AZITHROMYCIN [Suspect]
     Indication: BRONCHITIS
     Dosage: 2 TABS FIRST DAY, 1 THEREAFTER
     Route: 048
     Dates: start: 20110705, end: 20110709

REACTIONS (2)
  - AGEUSIA [None]
  - ANOSMIA [None]
